FAERS Safety Report 23134449 (Version 1)
Quarter: 2023Q4

REPORT INFORMATION
  Report Type: Spontaneous
  Country: CN (occurrence: CN)
  Receive Date: 20231101
  Receipt Date: 20231101
  Transmission Date: 20240109
  Serious: Yes (Hospitalization)
  Sender: FDA-Public Use
  Company Number: CN-PFIZER INC-PV202300177378

PATIENT
  Age: 72 Year
  Sex: Female
  Weight: 50 kg

DRUGS (1)
  1. LORBRENA [Suspect]
     Active Substance: LORLATINIB
     Indication: Therapeutic procedure
     Dosage: 100 MG, 1X/DAY
     Route: 048
     Dates: start: 20230818, end: 20230825

REACTIONS (3)
  - Mental disorder [Unknown]
  - Aggression [Unknown]
  - Speech disorder [Unknown]

NARRATIVE: CASE EVENT DATE: 20230824
